FAERS Safety Report 7203684-8 (Version None)
Quarter: 2010Q4

REPORT INFORMATION
  Report Type: 
  Country: None (occurrence: None)
  Receive Date: 20101220
  Receipt Date: 20101207
  Transmission Date: 20110411
  Serious: Yes (Other)
  Sender: FDA-Public Use
  Company Number: 2010P1003131

PATIENT

DRUGS (2)
  1. AMPHETAMINE SALTS (NO PREF. NAME) [Suspect]
  2. CON MEDS [Concomitant]

REACTIONS (4)
  - DRUG EFFECT DECREASED [None]
  - PANIC ATTACK [None]
  - PRODUCT SUBSTITUTION ISSUE [None]
  - SUICIDAL IDEATION [None]
